FAERS Safety Report 8790185 (Version 4)
Quarter: 2012Q4

REPORT INFORMATION
  Report Type: 
  Country: US (occurrence: US)
  Receive Date: 20120917
  Receipt Date: 20121214
  Transmission Date: 20130627
  Serious: Yes (Hospitalization, Disabling, Other)
  Sender: FDA-Public Use
  Company Number: US-009507513-1205USA04494

PATIENT

DRUGS (7)
  1. FOSAMAX [Suspect]
     Indication: OSTEOPOROSIS PROPHYLAXIS
     Dosage: 70 mg, qw
     Route: 048
     Dates: start: 2001, end: 20051220
  2. FOSAMAX [Suspect]
     Indication: OSTEOPENIA
     Dosage: 70 mg, qw
     Route: 048
     Dates: start: 20050927
  3. FOSAMAX [Suspect]
     Indication: OSTEOPOROSIS
     Dosage: UNK
     Route: 048
     Dates: start: 1997
  4. FOSAMAX [Suspect]
     Dosage: 10 mg, UNK
     Route: 048
     Dates: start: 19991206
  5. FOSAMAX [Suspect]
     Indication: OSTEOPOROSIS
     Dosage: 70 mg, qw
     Route: 048
     Dates: start: 20080524, end: 20110706
  6. ALENDRONATE SODIUM [Suspect]
  7. VITAMINS (UNSPECIFIED) [Concomitant]
     Dosage: UNK
     Dates: start: 1990

REACTIONS (31)
  - Open reduction of fracture [Unknown]
  - Low turnover osteopathy [Unknown]
  - Osteoporosis [Unknown]
  - Stress fracture [Unknown]
  - Open reduction of fracture [Unknown]
  - Intramedullary rod insertion [Unknown]
  - Open reduction of fracture [Unknown]
  - Clavicle fracture [Unknown]
  - Fracture [Unknown]
  - Fistula repair [Unknown]
  - Intestinal fistula repair [Unknown]
  - Fracture [Unknown]
  - Fall [Unknown]
  - Scapula fracture [Unknown]
  - Fall [Unknown]
  - Femur fracture [Unknown]
  - Femur fracture [Unknown]
  - Dental implantation [Unknown]
  - Infection [Unknown]
  - Urinary tract infection [Unknown]
  - Clavicle fracture [Unknown]
  - Menstruation irregular [Unknown]
  - Dyspareunia [Unknown]
  - Menorrhagia [Unknown]
  - Dysmenorrhoea [Unknown]
  - Bartholin^s cyst [Unknown]
  - Vulval disorder [Unknown]
  - Fibrocystic breast disease [Unknown]
  - Haemorrhoids [Unknown]
  - Mole excision [Unknown]
  - Pain in extremity [Unknown]
